FAERS Safety Report 6194812-4 (Version None)
Quarter: 2009Q2

REPORT INFORMATION
  Report Type: 
  Country: None (occurrence: None)
  Receive Date: 20090515
  Receipt Date: 20090515
  Transmission Date: 20091009
  Serious: Yes (Other)
  Sender: FDA-Public Use
  Company Number: None

PATIENT
  Age: 51 Year
  Sex: Male

DRUGS (3)
  1. OTRIVIN [Suspect]
     Indication: NASAL CONGESTION
     Dosage: MEASURED DOSE, QHS, NASAL
     Route: 045
  2. RITANIL METAMORPHINE [Concomitant]
  3. COLLESTRATIN [Concomitant]

REACTIONS (3)
  - DEVICE FAILURE [None]
  - DRUG DEPENDENCE [None]
  - INTENTIONAL DRUG MISUSE [None]
